FAERS Safety Report 24334431 (Version 1)
Quarter: 2024Q3

REPORT INFORMATION
  Report Type: Spontaneous
  Country: US (occurrence: US)
  Receive Date: 20240918
  Receipt Date: 20240918
  Transmission Date: 20241017
  Serious: Yes (Other)
  Sender: NOVARTIS
  Company Number: US-002147023-NVSC2024US182794

PATIENT
  Age: 27 Year
  Sex: Female

DRUGS (1)
  1. COSENTYX [Suspect]
     Active Substance: SECUKINUMAB
     Indication: Hidradenitis
     Dosage: 300 MG, OTHER (EVERY 28 DAYS)
     Route: 030
     Dates: start: 202304, end: 20240806

REACTIONS (3)
  - Brain abscess [Recovering/Resolving]
  - Headache [Unknown]
  - Visual field defect [Unknown]

NARRATIVE: CASE EVENT DATE: 20240806
